FAERS Safety Report 23186088 (Version 1)
Quarter: 2023Q4

REPORT INFORMATION
  Report Type: Report from Study
  Country: US (occurrence: US)
  Receive Date: 20231115
  Receipt Date: 20231115
  Transmission Date: 20240109
  Serious: Yes (Hospitalization, Other)
  Sender: FDA-Public Use
  Company Number: US-ABBVIE-5386788

PATIENT
  Sex: Male

DRUGS (2)
  1. HUMIRA [Suspect]
     Active Substance: ADALIMUMAB
     Indication: Rheumatoid arthritis
     Dosage: STOP DATE: JUN 2023
     Route: 058
     Dates: start: 20230623
  2. HUMIRA [Suspect]
     Active Substance: ADALIMUMAB
     Dosage: CITRATE FREE,?FORM STRENGTH:40 MILLIGRAM,?STOP DATE: 2023
     Route: 058
     Dates: start: 20230625

REACTIONS (8)
  - Mental impairment [Not Recovered/Not Resolved]
  - Fall [Recovering/Resolving]
  - Bacteraemia [Recovered/Resolved]
  - Scab [Unknown]
  - Pneumonia [Not Recovered/Not Resolved]
  - Device issue [Unknown]
  - Injection site discharge [Unknown]
  - Fall [Recovered/Resolved]

NARRATIVE: CASE EVENT DATE: 20230101
